FAERS Safety Report 13277195 (Version 2)
Quarter: 2017Q1

REPORT INFORMATION
  Report Type: Spontaneous
  Country: IT (occurrence: IT)
  Receive Date: 20170228
  Receipt Date: 20170314
  Transmission Date: 20170428
  Serious: Yes (Other)
  Sender: FDA-Public Use
  Company Number: IT-TEVA-742067ACC

PATIENT
  Age: 63 Year
  Sex: Male

DRUGS (1)
  1. ALLOPURINOLO TEVA ITALIA [Suspect]
     Active Substance: ALLOPURINOL
     Dosage: 4 TABLETS TOTAL

REACTIONS (5)
  - Pyrexia [Recovering/Resolving]
  - Headache [Recovering/Resolving]
  - Expired product administered [Unknown]
  - Influenza [Recovering/Resolving]
  - Sinusitis [Recovering/Resolving]

NARRATIVE: CASE EVENT DATE: 20170216
